FAERS Safety Report 7532570-9 (Version None)
Quarter: 2011Q2

REPORT INFORMATION
  Report Type: 
  Country: None (occurrence: None)
  Receive Date: 20110526
  Receipt Date: 20110516
  Transmission Date: 20111010
  Serious: Yes (Hospitalization)
  Sender: FDA-Public Use
  Company Number: 2011027504

PATIENT
  Age: 46 Year
  Sex: Male
  Weight: 74.8435 kg

DRUGS (10)
  1. HIZENTRA [Suspect]
  2. ASTELIN (DIPROPHYLLINE) [Concomitant]
  3. COMBIVENT [Concomitant]
  4. NASONEX [Concomitant]
  5. LORAB (VICODIN) [Concomitant]
  6. SPIRIVA [Concomitant]
  7. HIZENTRA [Suspect]
     Indication: IMMUNODEFICIENCY COMMON VARIABLE
     Dosage: SEE IMAGE
     Route: 058
     Dates: start: 20100701
  8. HIZENTRA [Suspect]
     Indication: IMMUNODEFICIENCY COMMON VARIABLE
     Dosage: SEE IMAGE
     Route: 058
     Dates: start: 20100427
  9. HIZENTRA [Suspect]
     Indication: IMMUNODEFICIENCY COMMON VARIABLE
     Dosage: SEE IMAGE
     Route: 058
     Dates: start: 20100504
  10. SYMBICORT [Concomitant]

REACTIONS (8)
  - VIRAL INFECTION [None]
  - INFUSION SITE MASS [None]
  - VOMITING [None]
  - NAUSEA [None]
  - MALAISE [None]
  - INFUSION SITE REACTION [None]
  - ABDOMINAL PAIN [None]
  - DIARRHOEA [None]
